FAERS Safety Report 20126799 (Version 1)
Quarter: 2021Q4

REPORT INFORMATION
  Report Type: Spontaneous
  Country: US (occurrence: None)
  Receive Date: 20211128
  Receipt Date: 20211128
  Transmission Date: 20220303
  Serious: No
  Sender: FDA-Public Use
  Company Number: None

PATIENT
  Age: 67 Year
  Sex: Male
  Weight: 81 kg

DRUGS (1)
  1. SIMVASTATIN [Suspect]
     Active Substance: SIMVASTATIN
     Indication: Hypercholesterolaemia
     Dates: start: 19980101, end: 20080101

REACTIONS (4)
  - Choking [None]
  - Dysphagia [None]
  - Neuralgia [None]
  - Inflammation [None]

NARRATIVE: CASE EVENT DATE: 20080101
